FAERS Safety Report 19409325 (Version 1)
Quarter: 2021Q2

REPORT INFORMATION
  Report Type: Spontaneous
  Country: US (occurrence: US)
  Receive Date: 20210614
  Receipt Date: 20210614
  Transmission Date: 20210717
  Serious: Yes (Hospitalization, Other)
  Sender: FDA-Public Use
  Company Number: US-PURDUE-USA-2020-0209888

PATIENT
  Sex: Male

DRUGS (2)
  1. OXYCODONE HYDROCHLORIDE (SIMILAR TO NDA 22?272) [Suspect]
     Active Substance: OXYCODONE HYDROCHLORIDE
     Indication: IRRITABLE BOWEL SYNDROME
     Dosage: 240 MG, DAILY (30 MG PILLS 8 TIMES A DAY)
     Route: 065
     Dates: start: 2006
  2. OXYCONTIN [Suspect]
     Active Substance: OXYCODONE HYDROCHLORIDE
     Indication: IRRITABLE BOWEL SYNDROME
     Dosage: 240 MG, DAILY (30 MG PILLS 8 TIMES A DAY)
     Route: 048
     Dates: start: 2006

REACTIONS (2)
  - Overdose [Unknown]
  - Psychological trauma [Unknown]
